FAERS Safety Report 16649467 (Version 1)
Quarter: 2019Q3

REPORT INFORMATION
  Report Type: Spontaneous
  Country: BR (occurrence: BR)
  Receive Date: 20190730
  Receipt Date: 20190730
  Transmission Date: 20191004
  Serious: Yes (Hospitalization)
  Sender: FDA-Public Use
  Company Number: BR-SHIRE-BR201733333

PATIENT

DRUGS (1)
  1. AGRYLIN [Suspect]
     Active Substance: ANAGRELIDE HYDROCHLORIDE
     Indication: THROMBOCYTOSIS
     Dosage: 0.5 MILLIGRAM, 1X/DAY:QD
     Route: 048
     Dates: start: 2015

REACTIONS (5)
  - Decreased immune responsiveness [Unknown]
  - Herpes zoster [Recovered/Resolved]
  - Product dose omission [Recovered/Resolved]
  - Product distribution issue [Unknown]
  - Malaise [Unknown]

NARRATIVE: CASE EVENT DATE: 2017
